FAERS Safety Report 11252563 (Version 1)
Quarter: 2015Q3

REPORT INFORMATION
  Report Type: Spontaneous
  Country: US (occurrence: None)
  Receive Date: 20150707
  Receipt Date: 20150707
  Transmission Date: 20151125
  Serious: Yes (Other)
  Sender: FDA-Public Use
  Company Number: None

PATIENT
  Sex: Female

DRUGS (2)
  1. CREST 3D WHITESTRIPS DENTAL WHITENING KIT, VERSION UNKNOWN (HYDROGEN PEROXIDE 5.3-14%) STRIP, 1STRIP [Suspect]
     Active Substance: HYDROGEN PEROXIDE
     Indication: TOOTH DISCOLOURATION
     Dosage: 1 STRIP, 1 ONLY TOP STRIP WORN MORE THEAN 3 HOURS, BOTTOM STRIP ON 300 MIN, INTRAORAL
     Dates: start: 201502, end: 201502
  2. CREST 3D WHITESTRIPS DENTAL WHITENING KIT, VERSION UNKNOWN (HYDROGEN PEROXIDE 5.3-14%) STRIP, 1STRIP [Suspect]
     Active Substance: HYDROGEN PEROXIDE
     Indication: DENTAL COSMETIC PROCEDURE
     Dosage: 1 STRIP, 1 ONLY TOP STRIP WORN MORE THEAN 3 HOURS, BOTTOM STRIP ON 300 MIN, INTRAORAL
     Dates: start: 201502, end: 201502

REACTIONS (5)
  - Dental caries [None]
  - Tooth loss [None]
  - Tooth discolouration [None]
  - Device damage [None]
  - Intentional device misuse [None]
